FAERS Safety Report 4822448-3 (Version None)
Quarter: 2005Q4

REPORT INFORMATION
  Report Type: 
  Country: None (occurrence: None)
  Receive Date: 20051103
  Receipt Date: 20051103
  Transmission Date: 20060501
  Serious: Yes (Life-Threatening, Hospitalization)
  Sender: FDA-Public Use
  Company Number: None

PATIENT
  Sex: Male
  Weight: 76.6 kg

DRUGS (5)
  1. LENALIDOMIDE 20 MG/M2 CELGENE [Suspect]
     Indication: GLIOBLASTOMA MULTIFORME
     Dosage: 20 MG/M2  X 21 DAYS ORAL
     Route: 048
     Dates: start: 20051025, end: 20051030
  2. MULTI-VITAMIN [Concomitant]
  3. NEXIUM [Concomitant]
  4. DEPAKOTE [Concomitant]
  5. DECADRON [Concomitant]

REACTIONS (7)
  - BRONCHOSCOPY ABNORMAL [None]
  - DRUG HYPERSENSITIVITY [None]
  - HYPOTENSION [None]
  - HYPOXIA [None]
  - INFECTION [None]
  - PNEUMONITIS [None]
  - PULMONARY OEDEMA [None]
